FAERS Safety Report 15909707 (Version 1)
Quarter: 2019Q1

REPORT INFORMATION
  Report Type: Spontaneous
  Country: PR (occurrence: PR)
  Receive Date: 20190204
  Receipt Date: 20190204
  Transmission Date: 20190417
  Serious: No
  Sender: FDA-Public Use
  Company Number: PR-ABBVIE-18K-131-2265529-00

PATIENT
  Sex: Male

DRUGS (1)
  1. HUMIRA [Suspect]
     Active Substance: ADALIMUMAB
     Indication: PSORIASIS
     Route: 058
     Dates: start: 2017

REACTIONS (7)
  - Drug ineffective [Not Recovered/Not Resolved]
  - Pain of skin [Unknown]
  - Psoriasis [Not Recovered/Not Resolved]
  - Product storage error [Not Recovered/Not Resolved]
  - Product administration error [Unknown]
  - Pharyngitis [Not Recovered/Not Resolved]
  - Skin haemorrhage [Unknown]

NARRATIVE: CASE EVENT DATE: 2017
